FAERS Safety Report 23269601 (Version 1)
Quarter: 2023Q4

REPORT INFORMATION
  Report Type: Report from Study
  Country: US (occurrence: US)
  Receive Date: 20231207
  Receipt Date: 20231207
  Transmission Date: 20240110
  Serious: Yes (Death, Other)
  Sender: FDA-Public Use
  Company Number: US-ACORDA-ACO_177013_2023

PATIENT
  Age: 73 Year
  Sex: Female

DRUGS (2)
  1. AMPYRA [Suspect]
     Active Substance: DALFAMPRIDINE
     Indication: Multiple sclerosis
     Dosage: 10 MILLIGRAM, Q12H
     Route: 048
     Dates: start: 202304
  2. ZEPOSIA [Concomitant]
     Active Substance: OZANIMOD HYDROCHLORIDE
     Indication: Product used for unknown indication
     Dosage: MAINTENANCE DOSE
     Route: 065
     Dates: start: 202206

REACTIONS (1)
  - Death [Fatal]

NARRATIVE: CASE EVENT DATE: 20231108
